FAERS Safety Report 7605588-5 (Version None)
Quarter: 2011Q3

REPORT INFORMATION
  Report Type: 
  Country: None (occurrence: None)
  Receive Date: 20110713
  Receipt Date: 20110706
  Transmission Date: 20111222
  Serious: Yes (Hospitalization)
  Sender: FDA-Public Use
  Company Number: FR-BRISTOL-MYERS SQUIBB COMPANY-15884794

PATIENT
  Age: 70 Year
  Sex: Female

DRUGS (5)
  1. FOSAMAX [Suspect]
     Route: 048
     Dates: start: 20060408, end: 20081008
  2. ABILIFY [Suspect]
     Route: 048
     Dates: start: 20061101, end: 20080901
  3. LITHIUM CARBONATE [Suspect]
     Route: 048
  4. EFFEXOR [Suspect]
     Route: 048
     Dates: start: 20061101, end: 20081001
  5. ZOLPIDEM [Suspect]
     Route: 048
     Dates: start: 20030701, end: 20080901

REACTIONS (1)
  - OSTEONECROSIS OF JAW [None]
